FAERS Safety Report 25749173 (Version 1)
Quarter: 2025Q3

REPORT INFORMATION
  Report Type: Spontaneous
  Country: US (occurrence: US)
  Receive Date: 20250902
  Receipt Date: 20250902
  Transmission Date: 20251021
  Serious: No
  Sender: TEVA
  Company Number: US-TEVA-VS-3359948

PATIENT
  Age: 34 Year
  Sex: Female

DRUGS (2)
  1. FREMANEZUMAB [Suspect]
     Active Substance: FREMANEZUMAB
     Indication: Product used for unknown indication
     Route: 065
     Dates: start: 20250711
  2. FREMANEZUMAB [Suspect]
     Active Substance: FREMANEZUMAB

REACTIONS (7)
  - Nausea [Unknown]
  - Vision blurred [Unknown]
  - Abdominal pain upper [Unknown]
  - Musculoskeletal stiffness [Unknown]
  - Diarrhoea [Unknown]
  - Migraine [Unknown]
  - Fatigue [Unknown]

NARRATIVE: CASE EVENT DATE: 20250101
